FAERS Safety Report 7796965-0 (Version None)
Quarter: 2011Q4

REPORT INFORMATION
  Report Type: 
  Country: None (occurrence: None)
  Receive Date: 20111005
  Receipt Date: 20111005
  Transmission Date: 20120403
  Serious: Yes (Life-Threatening)
  Sender: FDA-Public Use
  Company Number: None

PATIENT
  Age: 42 Year
  Sex: Female
  Weight: 63.502 kg

DRUGS (1)
  1. YASMIN [Suspect]
     Indication: CONTRACEPTION
     Dosage: 3MG/0.03MG
     Route: 048

REACTIONS (6)
  - MEMORY IMPAIRMENT [None]
  - CONVULSION [None]
  - CARDIAC ARREST [None]
  - FALL [None]
  - APNOEA [None]
  - PULMONARY EMBOLISM [None]
